FAERS Safety Report 16662437 (Version 2)
Quarter: 2020Q1

REPORT INFORMATION
  Report Type: Report from Study
  Country: US (occurrence: US)
  Receive Date: 20190802
  Receipt Date: 20200129
  Transmission Date: 20200409
  Serious: No
  Sender: FDA-Public Use
  Company Number: US-EXELIXIS-CABO-19017990

PATIENT
  Sex: Male

DRUGS (13)
  1. CABOMETYX [Suspect]
     Active Substance: CABOZANTINIB S-MALATE
     Indication: RENAL CANCER
     Dosage: 40 MG, QD
     Route: 048
     Dates: start: 20181114
  2. METOPROLOL TARTRATE. [Concomitant]
     Active Substance: METOPROLOL TARTRATE
  3. ZOMETA [Concomitant]
     Active Substance: ZOLEDRONIC ACID
  4. ASPIRIN. [Concomitant]
     Active Substance: ASPIRIN
  5. HYDROMORPHONE [Concomitant]
     Active Substance: HYDROMORPHONE
  6. ACYCLOVIR. [Concomitant]
     Active Substance: ACYCLOVIR
  7. DEXAMETHASON [Concomitant]
     Active Substance: DEXAMETHASONE
  8. VITAMIN D3 [Concomitant]
     Active Substance: CHOLECALCIFEROL
  9. ALLOPURINOL. [Concomitant]
     Active Substance: ALLOPURINOL
  10. TAMSULOSIN [Concomitant]
     Active Substance: TAMSULOSIN
  11. LEVOTHYROXINE. [Concomitant]
     Active Substance: LEVOTHYROXINE
  12. FINASTERIDE. [Concomitant]
     Active Substance: FINASTERIDE
  13. ONDANSETRON [Concomitant]
     Active Substance: ONDANSETRON

REACTIONS (3)
  - Rhinorrhoea [Unknown]
  - Diarrhoea [Not Recovered/Not Resolved]
  - Nasal ulcer [Unknown]
